FAERS Safety Report 21459021 (Version 1)
Quarter: 2022Q4

REPORT INFORMATION
  Report Type: Spontaneous
  Country: US (occurrence: None)
  Receive Date: 20221013
  Receipt Date: 20221013
  Transmission Date: 20230113
  Serious: No
  Sender: FDA-Public Use
  Company Number: None

PATIENT
  Sex: Female

DRUGS (1)
  1. CAPECITABINE [Suspect]
     Active Substance: CAPECITABINE
     Dosage: 1000MG BID ORAL
     Route: 048

REACTIONS (9)
  - Blood disorder [None]
  - Transfusion [None]
  - Illness [None]
  - Post procedural complication [None]
  - Diarrhoea [None]
  - Decreased appetite [None]
  - Dehydration [None]
  - Therapy interrupted [None]
  - Weight [None]
